FAERS Safety Report 9751295 (Version 1)
Quarter: 2013Q4

REPORT INFORMATION
  Report Type: Spontaneous
  Country: US (occurrence: US)
  Receive Date: 20131212
  Receipt Date: 20131212
  Transmission Date: 20140711
  Serious: No
  Sender: FDA-Public Use
  Company Number: US-BIOGENIDEC-2013BI097380

PATIENT
  Age: 55 Year
  Sex: Female
  Weight: 113 kg

DRUGS (10)
  1. TECFIDERA [Suspect]
     Indication: MULTIPLE SCLEROSIS
     Route: 048
     Dates: start: 20130809, end: 20130830
  2. LEVOTHYROXINE [Concomitant]
  3. SIMVASTATIN [Concomitant]
  4. VIIBRYD [Concomitant]
  5. WELLBUTRIN [Concomitant]
  6. GABAPENTIN [Concomitant]
  7. METOPROLOL [Concomitant]
  8. ALPRAZOLAM [Concomitant]
  9. FISH OIL [Concomitant]
  10. ACIDOPHILIUS [Concomitant]

REACTIONS (4)
  - Adverse drug reaction [Unknown]
  - Flushing [Unknown]
  - Rash [Unknown]
  - Nausea [Unknown]
